FAERS Safety Report 10213157 (Version 1)
Quarter: 2014Q2

REPORT INFORMATION
  Report Type: Report from Study
  Country: US (occurrence: US)
  Receive Date: 20140603
  Receipt Date: 20140603
  Transmission Date: 20141212
  Serious: Yes (Hospitalization)
  Sender: FDA-Public Use
  Company Number: US-BIOGENIDEC-2014BI050508

PATIENT
  Age: 58 Year
  Sex: Male
  Weight: 108 kg

DRUGS (1)
  1. TYSABRI [Suspect]
     Indication: MULTIPLE SCLEROSIS
     Route: 042
     Dates: start: 20090407

REACTIONS (2)
  - Lumbar radiculopathy [Recovered/Resolved]
  - Haematoma [Recovered/Resolved]
